FAERS Safety Report 11508299 (Version 1)
Quarter: 2015Q3

REPORT INFORMATION
  Report Type: Spontaneous
  Country: GB (occurrence: GB)
  Receive Date: 20150915
  Receipt Date: 20150915
  Transmission Date: 20151125
  Serious: Yes (Other)
  Sender: FDA-Public Use
  Company Number: GB-PFIZER INC-2015300172

PATIENT
  Age: 45 Year
  Sex: Female

DRUGS (7)
  1. HYDROXYCHLOROQUINE SULFATE. [Concomitant]
     Active Substance: HYDROXYCHLOROQUINE SULFATE
     Dosage: UNK ALTERNATE DAYS 1 OR 2 EVERY DAY
     Dates: start: 20150427
  2. AMOXICILLIN. [Concomitant]
     Active Substance: AMOXICILLIN
     Dosage: 1 DF, 3X/DAY
     Dates: start: 20150623, end: 20150630
  3. HYDROCORTISONE. [Concomitant]
     Active Substance: HYDROCORTISONE
     Dosage: 1 DF, 2X/DAY
     Dates: start: 20150623, end: 20150707
  4. LACRI-LUBE [Concomitant]
     Dosage: 1 DF, UNK
     Dates: start: 20140717
  5. INVITA D3 CHOLECALCIFEROL [Concomitant]
     Dosage: 1 DF (AMPOULE) TWICE DAILY
     Dates: start: 20150812
  6. REFRESH OPTIVE [Concomitant]
     Active Substance: CARBOXYMETHYLCELLULOSE SODIUM\GLYCERIN
     Dosage: UNK USE AS DIRECTED
     Dates: start: 20140717
  7. SULFASALAZINE. [Suspect]
     Active Substance: SULFASALAZINE
     Dosage: UNK
     Dates: start: 20150427

REACTIONS (2)
  - Mouth ulceration [Recovered/Resolved]
  - Diarrhoea [Recovered/Resolved]

NARRATIVE: CASE EVENT DATE: 20150825
